FAERS Safety Report 6801973-X (Version None)
Quarter: 2010Q2

REPORT INFORMATION
  Report Type: 
  Country: None (occurrence: None)
  Receive Date: 20100629
  Receipt Date: 20100617
  Transmission Date: 20101027
  Serious: Yes (Other)
  Sender: FDA-Public Use
  Company Number: US-JNJFOC-20100602932

PATIENT
  Age: 9 Month
  Sex: Male
  Weight: 10.43 kg

DRUGS (4)
  1. CONCENTRATED TYLENOL INFANT DROPS [Suspect]
     Route: 048
  2. CONCENTRATED TYLENOL INFANT DROPS [Suspect]
     Indication: PYREXIA
     Dosage: 80 MG/0.8 ML
     Route: 048
  3. CONCENTRATED MOTRIN INFANTS DROPS [Suspect]
     Route: 048
  4. CONCENTRATED MOTRIN INFANTS DROPS [Suspect]
     Indication: PYREXIA
     Dosage: 50 MG/1.25ML
     Route: 048

REACTIONS (4)
  - CYSTITIS [None]
  - DRUG INEFFECTIVE [None]
  - PRODUCT QUALITY ISSUE [None]
  - WHITE BLOOD CELL COUNT INCREASED [None]
